FAERS Safety Report 20582200 (Version 2)
Quarter: 2022Q1

REPORT INFORMATION
  Report Type: Report from Study
  Country: DE (occurrence: None)
  Receive Date: 20220311
  Receipt Date: 20220321
  Transmission Date: 20220423
  Serious: Yes (Hospitalization)
  Sender: FDA-Public Use
  Company Number: DE-ROCHE-3040763

PATIENT
  Age: 46 Year
  Sex: Female
  Weight: 99 kg

DRUGS (4)
  1. ATEZOLIZUMAB [Suspect]
     Active Substance: ATEZOLIZUMAB
     Indication: Cervix carcinoma stage IV
     Dosage: LAST DOSE ADMINISTRERED 21/FEB/2022
     Route: 041
     Dates: start: 20210706
  2. BEVACIZUMAB [Suspect]
     Active Substance: BEVACIZUMAB
     Indication: Cervix carcinoma stage IV
     Dosage: LAST DOSE ADMINISTRED 21/FEB/2022
     Route: 042
     Dates: start: 20210706
  3. PACLITAXEL [Suspect]
     Active Substance: PACLITAXEL
     Indication: Cervix carcinoma stage IV
     Dosage: LAST DOSE ADMINISTERED ON 19/OCT/2021
     Route: 042
     Dates: start: 20210706
  4. CARBOPLATIN [Suspect]
     Active Substance: CARBOPLATIN
     Indication: Cervix carcinoma stage IV
     Dosage: LAST DOSE ADMINISTERED ON 19/OCT/2021
     Route: 042
     Dates: start: 20210706, end: 20211019

REACTIONS (1)
  - Urinary tract infection [Recovered/Resolved]

NARRATIVE: CASE EVENT DATE: 20220226
